FAERS Safety Report 8987897 (Version 4)
Quarter: 2013Q1

REPORT INFORMATION
  Report Type: Spontaneous
  Country: US (occurrence: US)
  Receive Date: 20121227
  Receipt Date: 20130306
  Transmission Date: 20140127
  Serious: Yes (Other)
  Sender: FDA-Public Use
  Company Number: US-PFIZER INC-2012329695

PATIENT
  Sex: 0

DRUGS (1)
  1. SOLU-MEDROL [Suspect]
     Dosage: 125 MG, 2 ML ACT-O-VIAL, UNK

REACTIONS (2)
  - Staphylococcal infection [Unknown]
  - Nosocomial infection [Unknown]
